FAERS Safety Report 13030687 (Version 4)
Quarter: 2025Q4

REPORT INFORMATION
  Report Type: Spontaneous
  Country: US (occurrence: US)
  Receive Date: 20161215
  Receipt Date: 20251009
  Transmission Date: 20260117
  Serious: Yes (Death, Life-Threatening, Hospitalization, Other)
  Sender: SANOFI AVENTIS
  Company Number: US-SA-2016SA223363

PATIENT
  Age: 60 Year
  Sex: Male

DRUGS (2)
  1. CYCLOPHOSPHAMIDE [Suspect]
     Active Substance: CYCLOPHOSPHAMIDE
     Indication: Breast cancer
     Dosage: UNK UNK, QCY
     Route: 065
  2. DOCETAXEL [Suspect]
     Active Substance: DOCETAXEL
     Indication: Breast cancer
     Dosage: UNK UNK, QCY

REACTIONS (28)
  - Stevens-Johnson syndrome [Fatal]
  - Mucosal inflammation [Fatal]
  - Mouth ulceration [Fatal]
  - Mouth haemorrhage [Fatal]
  - Mucosal haemorrhage [Fatal]
  - Odynophagia [Fatal]
  - Tachycardia [Fatal]
  - Pharyngeal ulceration [Fatal]
  - Skin erosion [Fatal]
  - Rash [Fatal]
  - Purulent discharge [Fatal]
  - Erythema [Fatal]
  - Eyelid erosion [Fatal]
  - Lip ulceration [Fatal]
  - Generalised oedema [Fatal]
  - Disseminated intravascular coagulation [Fatal]
  - Pulmonary alveolar haemorrhage [Fatal]
  - Haemoptysis [Fatal]
  - Multiple organ dysfunction syndrome [Fatal]
  - Respiratory failure [Fatal]
  - Pulmonary congestion [Fatal]
  - Renal failure [Fatal]
  - Hypervolaemia [Fatal]
  - Hypotension [Fatal]
  - Hypoxia [Fatal]
  - Metabolic acidosis [Fatal]
  - Pneumocystis jirovecii pneumonia [Fatal]
  - Pneumonia mycoplasmal [Fatal]
